FAERS Safety Report 11249749 (Version 1)
Quarter: 2015Q3

REPORT INFORMATION
  Report Type: Spontaneous
  Country: US (occurrence: US)
  Receive Date: 20150708
  Receipt Date: 20150708
  Transmission Date: 20151125
  Serious: Yes (Death, Hospitalization, Other)
  Sender: FDA-Public Use
  Company Number: US-ELI_LILLY_AND_COMPANY-US200911003910

PATIENT
  Age: 68 Year
  Sex: Male
  Weight: 102.49 kg

DRUGS (13)
  1. ASPIRIN. [Concomitant]
     Active Substance: ASPIRIN
     Dosage: 81 MG, DAILY (1/D)
  2. CARBOPLATIN. [Concomitant]
     Active Substance: CARBOPLATIN
     Indication: NON-SMALL CELL LUNG CANCER STAGE II
     Dosage: AUC 5; DAY 1 EVERY 3 WEEKS
     Dates: start: 20090804, end: 20090826
  3. METFORMIN [Concomitant]
     Active Substance: METFORMIN HYDROCHLORIDE
     Dosage: 1000 MG, 2/D
  4. OXYGEN. [Concomitant]
     Active Substance: OXYGEN
     Route: 045
  5. GEMZAR [Suspect]
     Active Substance: GEMCITABINE HYDROCHLORIDE
     Indication: NON-SMALL CELL LUNG CANCER STAGE II
     Dosage: 1000 MG/M2,DAYS 1 AND 8 EVERY 3 WEES
     Dates: start: 20090804, end: 20090902
  6. GEMZAR [Suspect]
     Active Substance: GEMCITABINE HYDROCHLORIDE
     Dosage: 1000 MG/M2, DAYS 1 AND 8 EVERY 3 WEEKS
     Dates: start: 20090915, end: 20091014
  7. GLYBURIDE. [Concomitant]
     Active Substance: GLYBURIDE
     Dosage: 5 MG, DAILY (1/D)
  8. OXYGEN. [Concomitant]
     Active Substance: OXYGEN
     Route: 007
  9. CARBOPLATIN. [Concomitant]
     Active Substance: CARBOPLATIN
     Dosage: AUC 5; DAY 1 EVERY 3 WEEKS
     Dates: start: 20090915, end: 20091007
  10. AVAPRO [Concomitant]
     Active Substance: IRBESARTAN
     Dosage: 300 MG, DAILY (1/D)
  11. LIPITOR [Concomitant]
     Active Substance: ATORVASTATIN CALCIUM
     Dosage: 10 MG, EACH EVENING
  12. CARDIZEM [Concomitant]
     Active Substance: DILTIAZEM HYDROCHLORIDE
     Dosage: 240 MG, DAILY (1/D)
  13. TOPROL XL [Concomitant]
     Active Substance: METOPROLOL SUCCINATE
     Dosage: 100 MG, DAILY (1/D)

REACTIONS (3)
  - Acute interstitial pneumonitis [Not Recovered/Not Resolved]
  - Respiratory failure [Fatal]
  - Pulmonary fibrosis [Not Recovered/Not Resolved]

NARRATIVE: CASE EVENT DATE: 20091026
